FAERS Safety Report 25589364 (Version 1)
Quarter: 2025Q3

REPORT INFORMATION
  Report Type: Spontaneous
  Country: EU (occurrence: EU)
  Receive Date: 20250722
  Receipt Date: 20250722
  Transmission Date: 20251021
  Serious: Yes (Other)
  Sender: SAMSUNG BIOEPIS
  Company Number: None

PATIENT
  Age: 26 Year
  Sex: Male

DRUGS (1)
  1. ETANERCEPT [Suspect]
     Active Substance: ETANERCEPT
     Indication: Ankylosing spondylitis
     Dosage: 50 MG ONCE WEEKLY;?50 MG/1 ML;?DATE AND TIME OF LAST ADMINISTRATION: 08-MAY-2025;
     Route: 058
     Dates: start: 20250313

REACTIONS (1)
  - Sacral pain [Recovered/Resolved]

NARRATIVE: CASE EVENT DATE: 20250313
